FAERS Safety Report 11549112 (Version 2)
Quarter: 2015Q4

REPORT INFORMATION
  Report Type: Report from Study
  Country: US (occurrence: US)
  Receive Date: 20150924
  Receipt Date: 20151020
  Transmission Date: 20160304
  Serious: Yes (Hospitalization)
  Sender: FDA-Public Use
  Company Number: US-ACTELION-A-NJ2015-124165

PATIENT
  Age: 82 Year
  Sex: Male

DRUGS (3)
  1. MACITENTAN [Suspect]
     Active Substance: MACITENTAN
     Indication: PULMONARY ARTERIAL HYPERTENSION
     Dosage: 10 MG, QD
     Route: 048
  2. ESBRIET [Concomitant]
     Active Substance: PIRFENIDONE
  3. ADCIRCA [Concomitant]
     Active Substance: TADALAFIL

REACTIONS (6)
  - White blood cell count increased [Unknown]
  - Blood potassium decreased [Unknown]
  - Tremor [Unknown]
  - Cholelithiasis [Unknown]
  - White blood cell count decreased [Unknown]
  - Abdominal pain [Unknown]
